FAERS Safety Report 20429443 (Version 4)
Quarter: 2022Q4

REPORT INFORMATION
  Report Type: Other
  Country: US (occurrence: None)
  Receive Date: 20220204
  Receipt Date: 20221109
  Transmission Date: 20230113
  Serious: Yes (Other)
  Sender: FDA-Public Use
  Company Number: US-ROCHE-3013032

PATIENT
  Age: 67 Year
  Sex: Female

DRUGS (22)
  1. HERCEPTIN [Suspect]
     Active Substance: TRASTUZUMAB
     Indication: Metastasis
     Dosage: INFUSE 360MG INTRAVENOUSLY EVERY 21 DAY(S)
     Route: 042
     Dates: start: 20180516
  2. HERCEPTIN [Suspect]
     Active Substance: TRASTUZUMAB
     Indication: Breast cancer female
     Route: 042
     Dates: start: 20150120
  3. PERJETA [Suspect]
     Active Substance: PERTUZUMAB
     Indication: Breast cancer female
     Route: 042
     Dates: start: 201812
  4. PERJETA [Suspect]
     Active Substance: PERTUZUMAB
     Indication: Metastasis
     Route: 042
  5. KADCYLA [Suspect]
     Active Substance: ADO-TRASTUZUMAB EMTANSINE
     Indication: Breast cancer female
     Route: 042
     Dates: start: 20220315
  6. KADCYLA [Suspect]
     Active Substance: ADO-TRASTUZUMAB EMTANSINE
     Indication: Metastasis
  7. XELODA [Suspect]
     Active Substance: CAPECITABINE
     Indication: Metastasis
     Route: 048
     Dates: start: 20141229
  8. XELODA [Suspect]
     Active Substance: CAPECITABINE
     Indication: Breast cancer female
  9. VITAMIN D3 [Concomitant]
     Active Substance: CHOLECALCIFEROL
  10. SUCRALFATE [Concomitant]
     Active Substance: SUCRALFATE
  11. LISINOPRIL [Concomitant]
     Active Substance: LISINOPRIL
  12. HYDROXYZINE [Concomitant]
     Active Substance: HYDROXYZINE HYDROCHLORIDE
  13. ACETAMINOPHEN\HYDROCODONE [Concomitant]
     Active Substance: ACETAMINOPHEN\HYDROCODONE
  14. GABAPENTIN [Concomitant]
     Active Substance: GABAPENTIN
  15. FISH OIL [Concomitant]
     Active Substance: FISH OIL
  16. DECADRON [Concomitant]
     Active Substance: DEXAMETHASONE
  17. VITAMIN B12 [Concomitant]
     Active Substance: CYANOCOBALAMIN
  18. AMLODIPINE [Concomitant]
     Active Substance: AMLODIPINE BESYLATE
  19. CYTOXAN [Concomitant]
     Active Substance: CYCLOPHOSPHAMIDE
  20. GEMZAR [Concomitant]
     Active Substance: GEMCITABINE HYDROCHLORIDE
  21. FASLODEX [Concomitant]
     Active Substance: FULVESTRANT
  22. PACLITAXEL [Concomitant]
     Active Substance: PACLITAXEL

REACTIONS (12)
  - Pruritus [Unknown]
  - Cellulitis [Unknown]
  - Rash [Unknown]
  - Peripheral swelling [Unknown]
  - Nodule [Unknown]
  - Dysphagia [Unknown]
  - Choking sensation [Unknown]
  - Abdominal discomfort [Unknown]
  - Throat tightness [Unknown]
  - Neck pain [Unknown]
  - Anxiety [Unknown]
  - Arthralgia [Unknown]
